FAERS Safety Report 14157256 (Version 1)
Quarter: 2017Q4

REPORT INFORMATION
  Report Type: Spontaneous
  Country: JP (occurrence: JP)
  Receive Date: 20171103
  Receipt Date: 20171103
  Transmission Date: 20180321
  Serious: Yes (Other)
  Sender: FDA-Public Use
  Company Number: JP-PFIZER INC-2017465840

PATIENT
  Age: 86 Year
  Sex: Female

DRUGS (8)
  1. CALSIUM [Concomitant]
     Dosage: UNK
     Route: 048
  2. PRAVASTATIN SODIUM. [Concomitant]
     Active Substance: PRAVASTATIN SODIUM
     Dosage: 1 DF, 1X/DAY (1 TABLET ONCE DAILY)
     Route: 048
  3. SULPIRIDE [Concomitant]
     Active Substance: SULPIRIDE
     Dosage: 1.5 TABLET, DAILY
     Route: 048
  4. EDIROL [Concomitant]
     Active Substance: ELDECALCITOL
     Dosage: UNK
     Route: 048
  5. SOLANAX [Suspect]
     Active Substance: ALPRAZOLAM
     Dosage: 0.2 MG, 3X/DAY (1.5 TABLETS A DAY IN 3 DIVIDED DOSES)
     Route: 048
     Dates: start: 2014, end: 2017
  6. EVISTA [Concomitant]
     Active Substance: RALOXIFENE HYDROCHLORIDE
     Dosage: UNK
     Route: 048
  7. MAGMITT [Concomitant]
     Active Substance: MAGNESIUM OXIDE
     Dosage: UNK
     Route: 048
  8. LEVOFLOXACIN. [Concomitant]
     Active Substance: LEVOFLOXACIN
     Dosage: UNK
     Route: 048

REACTIONS (5)
  - Fall [Unknown]
  - Multiple injuries [Unknown]
  - Dizziness [Unknown]
  - Loss of consciousness [Unknown]
  - Withdrawal syndrome [Unknown]

NARRATIVE: CASE EVENT DATE: 2017
